FAERS Safety Report 24696599 (Version 2)
Quarter: 2024Q4

REPORT INFORMATION
  Report Type: Spontaneous
  Country: US (occurrence: US)
  Receive Date: 20241204
  Receipt Date: 20241219
  Transmission Date: 20250115
  Serious: No
  Sender: ALEXION PHARMACEUTICALS
  Company Number: US-AstraZeneca-CH-00736121AP

PATIENT
  Age: 77 Year

DRUGS (8)
  1. BYDUREON BCISE [Suspect]
     Active Substance: EXENATIDE
     Dosage: UNK, QW
  2. BYDUREON BCISE [Suspect]
     Active Substance: EXENATIDE
     Dosage: UNK, QW
     Route: 058
  3. BYDUREON BCISE [Suspect]
     Active Substance: EXENATIDE
     Dosage: UNK, QW
  4. BYDUREON BCISE [Suspect]
     Active Substance: EXENATIDE
     Dosage: UNK, QW
     Route: 058
  5. BYDUREON BCISE [Suspect]
     Active Substance: EXENATIDE
     Dosage: UNK
  6. BYDUREON BCISE [Suspect]
     Active Substance: EXENATIDE
     Dosage: UNK
     Route: 058
  7. BYDUREON BCISE [Suspect]
     Active Substance: EXENATIDE
     Dosage: UNK
  8. BYDUREON BCISE [Suspect]
     Active Substance: EXENATIDE
     Dosage: UNK
     Route: 058

REACTIONS (7)
  - Injection site mass [Unknown]
  - Incorrect dose administered by device [Unknown]
  - Product dose omission issue [Unknown]
  - Wrong technique in device usage process [Unknown]
  - Device use issue [Unknown]
  - Device malfunction [Unknown]
  - Device leakage [Unknown]
